FAERS Safety Report 10313951 (Version 1)
Quarter: 2014Q3

REPORT INFORMATION
  Report Type: Spontaneous
  Country: US (occurrence: None)
  Receive Date: 20140716
  Receipt Date: 20140716
  Transmission Date: 20150326
  Serious: Yes (Other)
  Sender: FDA-Public Use
  Company Number: AUR-APL-2014-07110

PATIENT
  Age: 69 Year
  Sex: Female

DRUGS (1)
  1. DEXAMFETAMINE [Suspect]
     Active Substance: DEXTROAMPHETAMINE
     Indication: PRODUCT USED FOR UNKNOWN INDICATION
     Dates: start: 20140618

REACTIONS (3)
  - Product substitution issue [None]
  - Malaise [None]
  - Economic problem [None]

NARRATIVE: CASE EVENT DATE: 20140618
